FAERS Safety Report 8616027-X (Version None)
Quarter: 2012Q3

REPORT INFORMATION
  Report Type: 
  Country: None (occurrence: None)
  Receive Date: 20120823
  Receipt Date: 20120817
  Transmission Date: 20120928
  Serious: No
  Sender: FDA-Public Use
  Company Number: US-PFIZER INC-2012203552

PATIENT
  Sex: Male

DRUGS (2)
  1. TEMAZEPAM [Concomitant]
     Indication: INSOMNIA
     Dosage: UNK
  2. SUTENT [Suspect]
     Dosage: 50 MG, UNK

REACTIONS (1)
  - BLOOD PRESSURE INCREASED [None]
